FAERS Safety Report 7295161-3 (Version None)
Quarter: 2011Q1

REPORT INFORMATION
  Report Type: 
  Country: None (occurrence: None)
  Receive Date: 20110216
  Receipt Date: 20110207
  Transmission Date: 20110831
  Serious: Yes (Hospitalization)
  Sender: FDA-Public Use
  Company Number: JP-SHIRE-SPV1-2008-00033

PATIENT
  Sex: Male
  Weight: 22 kg

DRUGS (7)
  1. CYPROHEPTADINE HYDROCHLORIDE [Concomitant]
     Indication: UPPER RESPIRATORY TRACT INFLAMMATION
     Dosage: 14 ML, 3X/DAY:TID
     Route: 065
     Dates: start: 20080123
  2. PROCATEROL HCL [Concomitant]
     Indication: ASTHMA
     Dosage: 14 ML, 3X/DAY:TID
     Dates: start: 20080123
  3. MONTELUKAST SODIUM [Concomitant]
     Indication: ASTHMA
     Dosage: 4 MG, 1X/DAY:QD
     Route: 065
     Dates: start: 20071127
  4. HYDROCORTISONE SODIUM SUCCINATE [Concomitant]
     Dosage: 100 MG, 1X/DAY:QD
     Route: 065
     Dates: start: 20080115
  5. CLARITHROMYCIN [Concomitant]
     Indication: ASTHMA
     Dosage: 120 MG, 1X/DAY:QD
     Route: 065
     Dates: start: 20080220
  6. HYDROCORTISONE SODIUM SUCCINATE [Concomitant]
     Indication: PREMEDICATION
     Dosage: 100 MG, 2X/DAY:BID
     Route: 065
     Dates: start: 20080104, end: 20080105
  7. IDURSULFASE [Suspect]
     Indication: MUCOPOLYSACCHARIDOSIS II
     Dosage: 12 MG, 1X/WEEK
     Route: 041
     Dates: start: 20071127

REACTIONS (4)
  - INFUSION RELATED REACTION [None]
  - BRONCHITIS [None]
  - PYREXIA [None]
  - DIARRHOEA [None]
